FAERS Safety Report 9556142 (Version 1)
Quarter: 2013Q3

REPORT INFORMATION
  Report Type: Spontaneous
  Country: US (occurrence: US)
  Receive Date: 20130926
  Receipt Date: 20130926
  Transmission Date: 20140515
  Serious: No
  Sender: FDA-Public Use
  Company Number: US-B.I. PHARMACEUTICALS,INC./RIDGEFIELD-2013-BI-29305BP

PATIENT
  Sex: Male
  Weight: 77 kg

DRUGS (6)
  1. COMBIVENT [Suspect]
     Indication: PRODUCT USED FOR UNKNOWN INDICATION
     Dosage: STRENGTH: 20 MCG / 100 MCG; DAILY DOSE: 20 MCG / 100 MCG
     Route: 055
     Dates: start: 20130917
  2. NEXIUM [Concomitant]
     Indication: DYSPEPSIA
     Route: 048
     Dates: start: 2007
  3. TAMSULOSIN [Concomitant]
     Indication: PROSTATOMEGALY
     Dosage: 0.4 MG
     Route: 048
     Dates: start: 1996
  4. VYTORIN [Concomitant]
     Indication: BLOOD CHOLESTEROL INCREASED
     Dosage: STRENGTH: 10 MG / 10 MG; DAILY DOSE: 10 MG / 10 MG
     Route: 048
     Dates: start: 1983
  5. IRBESARTAN [Concomitant]
     Dosage: 150 MG
     Route: 048
     Dates: start: 1983
  6. DILTIAZEM [Concomitant]
     Dosage: 180 MG
     Route: 048
     Dates: start: 1983

REACTIONS (1)
  - Choking [Not Recovered/Not Resolved]
